FAERS Safety Report 15151312 (Version 1)
Quarter: 2018Q3

REPORT INFORMATION
  Report Type: Spontaneous
  Country: FR (occurrence: FR)
  Receive Date: 20180716
  Receipt Date: 20180716
  Transmission Date: 20181010
  Serious: Yes (Hospitalization, Disabling)
  Sender: FDA-Public Use
  Company Number: PHHY2018FR040410

PATIENT
  Age: 57 Year
  Sex: Female

DRUGS (4)
  1. TAFINLAR [Suspect]
     Active Substance: DABRAFENIB MESYLATE
     Indication: METASTATIC MALIGNANT MELANOMA
     Dosage: 150 MG, UNK
     Route: 048
     Dates: start: 20180605
  2. MEKINIST [Suspect]
     Active Substance: TRAMETINIB DIMETHYL SULFOXIDE
     Indication: METASTATIC MALIGNANT MELANOMA
     Dosage: 2 MG, UNK
     Route: 048
     Dates: start: 20180605
  3. SOLUPRED (METHYLPREDNISOLONE) [Concomitant]
     Active Substance: METHYLPREDNISOLONE
     Indication: METASTASES TO CENTRAL NERVOUS SYSTEM
  4. SOLUPRED (METHYLPREDNISOLONE) [Concomitant]
     Active Substance: METHYLPREDNISOLONE
     Indication: INTRACRANIAL PRESSURE INCREASED
     Dosage: UNK
     Route: 048
     Dates: start: 20180602

REACTIONS (9)
  - Loss of consciousness [Unknown]
  - Balance disorder [Unknown]
  - Sensory loss [Unknown]
  - Speech disorder [Recovering/Resolving]
  - Aphasia [Unknown]
  - Carotid artery disease [Recovering/Resolving]
  - Ischaemic stroke [Recovering/Resolving]
  - Motor dysfunction [Unknown]
  - Gait disturbance [Unknown]

NARRATIVE: CASE EVENT DATE: 20180623
